FAERS Safety Report 9495899 (Version 1)
Quarter: 2013Q3

REPORT INFORMATION
  Report Type: Report from Study
  Country: CA (occurrence: CA)
  Receive Date: 20130903
  Receipt Date: 20130903
  Transmission Date: 20140515
  Serious: Yes (Hospitalization)
  Sender: FDA-Public Use
  Company Number: CA-US-EMD SERONO, INC.-7234251

PATIENT
  Age: 58 Year
  Sex: Male

DRUGS (5)
  1. REBIF [Suspect]
     Indication: RELAPSING-REMITTING MULTIPLE SCLEROSIS
     Route: 058
     Dates: start: 20081024
  2. SYMBICORT [Concomitant]
     Indication: ASTHMA
  3. SALBUTAMOL [Concomitant]
     Indication: ASTHMA
  4. BACLOFEN [Concomitant]
     Indication: MUSCLE SPASTICITY
  5. SPIRIVA [Concomitant]
     Indication: PRODUCT USED FOR UNKNOWN INDICATION

REACTIONS (2)
  - Pulmonary embolism [Unknown]
  - Pancreatic mass [Unknown]
